FAERS Safety Report 18337190 (Version 1)
Quarter: 2020Q4

REPORT INFORMATION
  Report Type: Spontaneous
  Country: US (occurrence: US)
  Receive Date: 20201001
  Receipt Date: 20201001
  Transmission Date: 20210113
  Serious: Yes (Hospitalization)
  Sender: FDA-Public Use
  Company Number: US-ROCHE-2687970

PATIENT
  Sex: Male

DRUGS (3)
  1. ESBRIET [Suspect]
     Active Substance: PIRFENIDONE
     Indication: IDIOPATHIC PULMONARY FIBROSIS
     Dosage: 1 TAB. 3 TIMES DAILY WITH MEAL (267 MG TABLET)
     Route: 065
  2. ESBRIET [Suspect]
     Active Substance: PIRFENIDONE
     Dosage: 2 TAB. 3 TIMES DAILY WITH MEAL
     Route: 065
  3. ESBRIET [Suspect]
     Active Substance: PIRFENIDONE
     Dosage: 3 TAB. 3 TIMES DAILY WITH MEAL
     Route: 065

REACTIONS (1)
  - Dyspnoea [Not Recovered/Not Resolved]
